FAERS Safety Report 8623452-X (Version None)
Quarter: 2012Q3

REPORT INFORMATION
  Report Type: 
  Country: None (occurrence: None)
  Receive Date: 20120824
  Receipt Date: 20120824
  Transmission Date: 20120928
  Serious: No
  Sender: FDA-Public Use
  Company Number: None

PATIENT
  Sex: Female
  Weight: 46.2669 kg

DRUGS (3)
  1. CYMBALTA [Concomitant]
  2. ABILIFY [Suspect]
     Indication: MAJOR DEPRESSION
     Dosage: TAB 1 QD
     Dates: start: 20120104, end: 20120215
  3. ABILIFY [Suspect]
     Indication: MAJOR DEPRESSION
     Dosage: TAB 1 QD
     Dates: start: 20120228

REACTIONS (7)
  - JOINT STIFFNESS [None]
  - MUSCULOSKELETAL STIFFNESS [None]
  - CONVERSION DISORDER [None]
  - CRYING [None]
  - ARTHRALGIA [None]
  - SUICIDAL IDEATION [None]
  - DEPRESSION [None]
